FAERS Safety Report 7869894-1 (Version None)
Quarter: 2011Q4

REPORT INFORMATION
  Report Type: 
  Country: None (occurrence: None)
  Receive Date: 20111028
  Receipt Date: 20110111
  Transmission Date: 20120403
  Serious: No
  Sender: FDA-Public Use
  Company Number: US-AMGEN-USASP2011001668

PATIENT
  Age: 51 Year
  Sex: Female
  Weight: 89.342 kg

DRUGS (9)
  1. LEVOTHYROXINE SODIUM [Concomitant]
     Dosage: 50 A?G, UNK
     Route: 048
  2. IBUPROFEN [Concomitant]
     Dosage: 200 MG, UNK
     Route: 048
  3. SPIRIVA [Concomitant]
     Route: 048
  4. LASIX [Concomitant]
     Dosage: 20 MG, UNK
     Route: 048
  5. ACETAMINOPHEN AND HYDROCODONE BITARTRATE [Concomitant]
  6. VITAMIN D [Concomitant]
     Dosage: 1000 IU, UNK
     Route: 048
  7. PROAIR HFA [Concomitant]
  8. ENBREL [Suspect]
     Indication: PRODUCT USED FOR UNKNOWN INDICATION
     Dosage: 50 MG, QWK
  9. WELLBUTRIN XL [Concomitant]
     Dosage: 150 MG, UNK
     Route: 048

REACTIONS (1)
  - DECREASED APPETITE [None]
